FAERS Safety Report 25770609 (Version 2)
Quarter: 2025Q4

REPORT INFORMATION
  Report Type: Report from Study
  Country: US (occurrence: US)
  Receive Date: 20250908
  Receipt Date: 20251006
  Transmission Date: 20260118
  Serious: No
  Sender: GLAXOSMITHKLINE
  Company Number: US-GSK-US2025106141

PATIENT
  Age: 63 Year
  Sex: Male

DRUGS (1)
  1. BELIMUMAB [Suspect]
     Active Substance: BELIMUMAB
     Indication: Systemic lupus erythematosus
     Dosage: 200 MG, WE
     Dates: start: 202507, end: 20250823

REACTIONS (6)
  - Injection site bruising [Unknown]
  - Injection site reaction [Unknown]
  - Device use error [Unknown]
  - Accidental exposure to product [Unknown]
  - Product storage error [Unknown]
  - Product complaint [Unknown]

NARRATIVE: CASE EVENT DATE: 20250816
